FAERS Safety Report 18136964 (Version 1)
Quarter: 2020Q3

REPORT INFORMATION
  Report Type: Spontaneous
  Country: IN (occurrence: IN)
  Receive Date: 20200812
  Receipt Date: 20200812
  Transmission Date: 20201103
  Serious: Yes (Hospitalization, Other)
  Sender: FDA-Public Use
  Company Number: IN-ALEMBIC PHARMACUETICALS LIMITED-2020SCAL000341

PATIENT

DRUGS (3)
  1. METOPROLOL. [Concomitant]
     Active Substance: METOPROLOL
     Indication: HYPERTENSION
     Dosage: 25 MILLIGRAM, OD
  2. TELMISARTAN. [Suspect]
     Active Substance: TELMISARTAN
     Indication: HYPERTENSION
     Dosage: 40 MILLIGRAM, OD
     Dates: start: 20180126
  3. CLOPIDOGREL AND ASPIRIN [Concomitant]
     Indication: HYPERTENSION
     Dosage: ASPIRIN 75 MG + CLOPIDOGREL 75 MG/DAY

REACTIONS (25)
  - Oral pain [Recovered/Resolved]
  - Skin fissures [Recovered/Resolved]
  - Pyrexia [Recovered/Resolved]
  - Oral mucosa erosion [Recovered/Resolved]
  - Throat tightness [Recovered/Resolved]
  - Eosinophil count increased [Recovered/Resolved]
  - Mouth ulceration [Recovered/Resolved]
  - Lip swelling [Recovered/Resolved]
  - Red blood cell sedimentation rate increased [Recovered/Resolved]
  - Stomatitis [Recovered/Resolved]
  - Oral toxicity [Recovered/Resolved]
  - Angioedema [Recovered/Resolved]
  - Hypersensitivity [Recovered/Resolved]
  - C-reactive protein increased [Recovered/Resolved]
  - Glossitis [Recovered/Resolved]
  - Tongue disorder [Recovered/Resolved]
  - Hypophagia [Recovered/Resolved]
  - Chronic gastritis [Recovered/Resolved]
  - Lip pain [Recovered/Resolved]
  - Abdominal pain [Recovered/Resolved]
  - Ulcer haemorrhage [Recovered/Resolved]
  - Oropharyngeal pain [Recovered/Resolved]
  - Lip haemorrhage [Recovered/Resolved]
  - Dysphagia [Recovering/Resolving]
  - Pain [Recovered/Resolved]

NARRATIVE: CASE EVENT DATE: 20180128
